FAERS Safety Report 5889746 (Version 31)
Quarter: 2014Q1

REPORT INFORMATION
  Report Type: Spontaneous
  Country: US (occurrence: US)
  Receive Date: 20051003
  Receipt Date: 20140221
  Transmission Date: 20141002
  Serious: Yes (Hospitalization, Other)
  Sender: FDA-Public Use
  Company Number: PHEH2005US10700

PATIENT
  Age: 56 Year
  Sex: Male
  Weight: 103.85 kg

DRUGS (24)
  1. AREDIA [Suspect]
     Indication: PLASMA CELL MYELOMA
     Dosage: 90 MG, QMO
     Route: 041
     Dates: start: 19971204, end: 2005
  2. ZOMETA [Suspect]
     Dosage: UNK UKN, UNK
     Route: 042
  3. COUMADIN [Suspect]
  4. THALIDOMIDE [Concomitant]
     Dosage: 200 MG
  5. NEURONTIN [Concomitant]
     Dosage: 1800 MG
  6. PAROXETINE [Concomitant]
     Dosage: 20 MG
  7. ASPIRIN [Concomitant]
  8. ALLOPURINOL [Concomitant]
     Indication: RENAL FAILURE
     Dosage: 300 MG
  9. ALPRAZOLAM [Concomitant]
     Indication: DEPRESSION
  10. TAGAMET [Concomitant]
  11. OSCAL [Concomitant]
  12. LODINE [Concomitant]
  13. VINCRISTINE [Concomitant]
     Dosage: 2 MG
  14. DOXORUBICIN [Concomitant]
  15. ADRIAMYCIN [Concomitant]
     Dosage: 80 MG
  16. DEXAMETHASONE [Concomitant]
     Dosage: 4 MG, QMO
  17. VANCOMYCIN [Concomitant]
  18. PYRIDOXINE [Concomitant]
  19. LABETALOL [Concomitant]
  20. HYDRALAZINE [Concomitant]
  21. PROMETHAZINE [Concomitant]
  22. FUROSEMIDE [Concomitant]
  23. METOLAZONE [Concomitant]
  24. INTERFERON [Concomitant]

REACTIONS (164)
  - Diabetes mellitus [Unknown]
  - Venous thrombosis [Unknown]
  - Nephrosclerosis [Unknown]
  - Osteonecrosis of jaw [Unknown]
  - Loose tooth [Unknown]
  - Bone disorder [Not Recovered/Not Resolved]
  - Osteomyelitis [Not Recovered/Not Resolved]
  - Alpha haemolytic streptococcal infection [Unknown]
  - Excessive granulation tissue [Unknown]
  - Paraesthesia oral [Unknown]
  - Mastication disorder [Unknown]
  - Gingival disorder [Unknown]
  - Cardiomegaly [Unknown]
  - Hypoaesthesia oral [Unknown]
  - Sepsis [Unknown]
  - Atelectasis [Unknown]
  - Osteoarthritis [Unknown]
  - Pleural effusion [Unknown]
  - Chest pain [Unknown]
  - Dyspnoea [Unknown]
  - Depression [Unknown]
  - Neuropathy peripheral [Unknown]
  - Coronary artery disease [Unknown]
  - Anaemia [Unknown]
  - Hyperparathyroidism secondary [Unknown]
  - Hyperphosphataemia [Unknown]
  - Leukocytosis [Unknown]
  - Hypertension [Unknown]
  - Cardiac failure congestive [Unknown]
  - Hyponatraemia [Unknown]
  - Hypoalbuminaemia [Unknown]
  - Sleep apnoea syndrome [Unknown]
  - Hypoacusis [Unknown]
  - Compression fracture [Unknown]
  - Cardiomyopathy [Unknown]
  - Aortic bruit [Unknown]
  - Gout [Unknown]
  - Staphylococcal infection [Unknown]
  - Renal failure chronic [Unknown]
  - Nephrogenic anaemia [Unknown]
  - Coagulopathy [Unknown]
  - Venous occlusion [Unknown]
  - Oral cavity fistula [Unknown]
  - Nicotine dependence [Unknown]
  - Pneumonitis [Unknown]
  - Hypertensive nephropathy [Unknown]
  - Bacteraemia [Unknown]
  - Ventricular tachycardia [Unknown]
  - Chronic obstructive pulmonary disease [Unknown]
  - Pulmonary oedema [Unknown]
  - Pneumonia [Unknown]
  - Plasma protein metabolism disorder [Unknown]
  - Emphysema [Unknown]
  - Left ventricular dysfunction [Unknown]
  - Bradycardia [Unknown]
  - Fall [Unknown]
  - Bundle branch block left [Unknown]
  - Extrasystoles [Unknown]
  - Arrhythmia [Unknown]
  - Phosphorus metabolism disorder [Unknown]
  - Mononeuritis [Unknown]
  - Peripheral vascular disorder [Unknown]
  - Scoliosis [Unknown]
  - Constipation [Unknown]
  - Cataract [Unknown]
  - Umbilical hernia [Unknown]
  - Haemorrhagic diathesis [Unknown]
  - Local swelling [Unknown]
  - Hypoaesthesia [Unknown]
  - Muscular weakness [Unknown]
  - Left ventricular hypertrophy [Unknown]
  - Mitral valve incompetence [Unknown]
  - Aortic valve incompetence [Unknown]
  - Tricuspid valve incompetence [Unknown]
  - Pericardial effusion [Unknown]
  - Somnolence [Unknown]
  - Superior vena cava occlusion [Unknown]
  - Pulmonary hypertension [Unknown]
  - Cardiac valve disease [Unknown]
  - Actinomycosis [Unknown]
  - Device related infection [Unknown]
  - Peripheral arterial occlusive disease [Unknown]
  - Dizziness [Unknown]
  - Salivary gland cancer [Unknown]
  - Pain in jaw [Unknown]
  - Cervical vertebral fracture [Unknown]
  - Arteriosclerosis coronary artery [Unknown]
  - Periorbital oedema [Unknown]
  - Gouty arthritis [Unknown]
  - Dilatation ventricular [Unknown]
  - Right atrial dilatation [Unknown]
  - Left atrial dilatation [Unknown]
  - Fluid overload [Unknown]
  - Staphylococcal sepsis [Unknown]
  - Hypermagnesaemia [Unknown]
  - Bone swelling [Unknown]
  - Device malfunction [Unknown]
  - Pulmonary congestion [Unknown]
  - Osteoporosis [Unknown]
  - Glomerulonephritis chronic [Unknown]
  - Lung infiltration [Unknown]
  - Back pain [Unknown]
  - Pulmonary fibrosis [Unknown]
  - Cholelithiasis [Unknown]
  - Gait disturbance [Unknown]
  - Hyperlipidaemia [Unknown]
  - Metabolic acidosis [Unknown]
  - Fistula discharge [Unknown]
  - Vertebral wedging [Unknown]
  - Upper gastrointestinal haemorrhage [Unknown]
  - Osteolysis [Unknown]
  - Foot fracture [Unknown]
  - Orthostatic hypotension [Unknown]
  - Herpes zoster [Unknown]
  - Respiratory tract infection [Unknown]
  - Gingivitis [Unknown]
  - Gingival bleeding [Unknown]
  - Epistaxis [Unknown]
  - Mitral valve sclerosis [Unknown]
  - Ischaemic cardiomyopathy [Unknown]
  - Aortic valve sclerosis [Unknown]
  - Atrioventricular block first degree [Unknown]
  - Carotid bruit [Unknown]
  - Acute myocardial infarction [Unknown]
  - Carotid artery stenosis [Unknown]
  - Hyperhidrosis [Unknown]
  - Peritonitis [Unknown]
  - Nausea [Unknown]
  - Cardiac murmur [Unknown]
  - Fatigue [Unknown]
  - Pain in extremity [Unknown]
  - Ear pain [Unknown]
  - Neck pain [Unknown]
  - Osteosclerosis [Unknown]
  - Oedema [Unknown]
  - Swelling [Unknown]
  - Purulent discharge [Unknown]
  - Impaired healing [Unknown]
  - Tobacco abuse [Unknown]
  - Anxiety [Unknown]
  - Panic attack [Unknown]
  - Atrial fibrillation [Unknown]
  - Lung hyperinflation [Unknown]
  - Hip fracture [Unknown]
  - Penis disorder [Unknown]
  - Hypokalaemia [Unknown]
  - Femoral neck fracture [Unknown]
  - Loss of consciousness [Unknown]
  - Deep vein thrombosis [Unknown]
  - Arthralgia [Unknown]
  - Ecchymosis [Unknown]
  - Balance disorder [Unknown]
  - Ventricular fibrillation [Unknown]
  - Joint swelling [Unknown]
  - Pulmonary embolism [Unknown]
  - Syncope [Unknown]
  - Mitral valve calcification [Unknown]
  - Electrocardiogram ST segment depression [Unknown]
  - Haematoma [Unknown]
  - Clavicle fracture [Unknown]
  - Generalised oedema [Unknown]
  - Ejection fraction decreased [Unknown]
  - Systolic dysfunction [Unknown]
  - Chest discomfort [Unknown]
